FAERS Safety Report 6411797-3 (Version None)
Quarter: 2009Q4

REPORT INFORMATION
  Report Type: 
  Country: None (occurrence: None)
  Receive Date: 20091020
  Receipt Date: 20091007
  Transmission Date: 20100525
  Serious: Yes (Hospitalization)
  Sender: FDA-Public Use
  Company Number: 2009AC000152

PATIENT
  Age: 51 Year
  Sex: Male

DRUGS (37)
  1. DIGOXIN [Suspect]
     Dosage: 0.125 MG;QD;PO
     Route: 048
  2. HYDROCODONE BITARTRATE AND ACETAMINOPHEN [Concomitant]
  3. ULTRAM [Concomitant]
  4. PROPDXY-N/APAP [Concomitant]
  5. CEFADROXIL [Concomitant]
  6. PROTONIX [Concomitant]
  7. METOPROLOL TARTRATE [Concomitant]
  8. PLAVIX [Concomitant]
  9. AMBIEN [Concomitant]
  10. OXYCODONE [Concomitant]
  11. WARFARIN SODIUM [Concomitant]
  12. FLURAZEPAM [Concomitant]
  13. TEMAZEPAM [Concomitant]
  14. LISINOPRIL [Concomitant]
  15. PRAVACHOL [Concomitant]
  16. OMEPRAZOLE [Concomitant]
  17. LEVAQUIN [Concomitant]
  18. ZOCOR [Concomitant]
  19. SINGULAIR [Concomitant]
  20. ACETAMINOPHEN [Concomitant]
  21. ZETIA [Concomitant]
  22. AMOX TR-K CV [Concomitant]
  23. ZOLOFT [Concomitant]
  24. LEXAPRO [Concomitant]
  25. TABRADEX [Concomitant]
  26. CLOPIDOGREL [Concomitant]
  27. PREDNISONE [Concomitant]
  28. AMOXOCILLLIN [Concomitant]
  29. GENTAK [Concomitant]
  30. ASPIRIN [Concomitant]
  31. LOVENOX [Concomitant]
  32. CARDIZEM [Concomitant]
  33. LASIX [Concomitant]
  34. ATIVAN [Concomitant]
  35. CEFEPIME HYDROCHLORIDE [Concomitant]
  36. MVT [Concomitant]
  37. THIAMINE [Concomitant]

REACTIONS (30)
  - AGITATION [None]
  - ASPIRATION [None]
  - ASTHENIA [None]
  - ATRIAL FIBRILLATION [None]
  - CARDIAC DISORDER [None]
  - CARDIAC FAILURE CONGESTIVE [None]
  - CARDIAC MURMUR [None]
  - CARDIOMYOPATHY [None]
  - CONFUSIONAL STATE [None]
  - CORONARY ARTERY DISEASE [None]
  - CORONARY ARTERY INSUFFICIENCY [None]
  - DIZZINESS [None]
  - DYSPNOEA [None]
  - ELECTROCARDIOGRAM ST-T CHANGE [None]
  - ENTEROBACTER INFECTION [None]
  - FATIGUE [None]
  - HEART RATE IRREGULAR [None]
  - HYPOTENSION [None]
  - INGUINAL HERNIA [None]
  - INJURY [None]
  - LEFT VENTRICULAR DYSFUNCTION [None]
  - LEUKOCYTOSIS [None]
  - MITRAL VALVE INCOMPETENCE [None]
  - NAUSEA [None]
  - PALPITATIONS [None]
  - PLEURAL EFFUSION [None]
  - PNEUMONIA [None]
  - POST PROCEDURAL COMPLICATION [None]
  - PRESYNCOPE [None]
  - RESPIRATORY DISTRESS [None]
